FAERS Safety Report 7908543-0 (Version None)
Quarter: 2011Q4

REPORT INFORMATION
  Report Type: 
  Country: None (occurrence: None)
  Receive Date: 20111111
  Receipt Date: 20111103
  Transmission Date: 20120403
  Serious: Yes (Hospitalization, Other)
  Sender: FDA-Public Use
  Company Number: CA-PFIZER INC-2009243596

PATIENT
  Age: 51 Year
  Sex: Male
  Weight: 77 kg

DRUGS (3)
  1. ACETAMINOPHEN [Concomitant]
     Indication: BACK PAIN
     Dosage: UNK
  2. DOVOBET [Concomitant]
     Indication: PSORIASIS
     Dosage: UNK
  3. CELEBREX [Suspect]
     Indication: ARTHRITIS
     Dosage: 200 MG, SINGLE
     Dates: start: 20090708, end: 20090708

REACTIONS (3)
  - VASCULITIS [None]
  - DRUG HYPERSENSITIVITY [None]
  - PSEUDOPORPHYRIA [None]
